FAERS Safety Report 7764701-X (Version None)
Quarter: 2011Q3

REPORT INFORMATION
  Report Type: 
  Country: None (occurrence: None)
  Receive Date: 20110921
  Receipt Date: 20110916
  Transmission Date: 20111222
  Serious: Yes (Hospitalization)
  Sender: FDA-Public Use
  Company Number: US-VERTEX PHARMACEUTICALS INC.-AE-2011-001635

PATIENT

DRUGS (1)
  1. INCIVEK [Suspect]
     Indication: HEPATITIS C

REACTIONS (6)
  - DIARRHOEA [None]
  - ABDOMINAL PAIN LOWER [None]
  - PYREXIA [None]
  - VOMITING [None]
  - BILIARY COLIC [None]
  - NAUSEA [None]
